FAERS Safety Report 24674909 (Version 2)
Quarter: 2025Q1

REPORT INFORMATION
  Report Type: Spontaneous
  Country: EE (occurrence: EE)
  Receive Date: 20241128
  Receipt Date: 20250116
  Transmission Date: 20250409
  Serious: Yes (Hospitalization, Other)
  Sender: ABBVIE
  Company Number: EE-RICHTER-2024-GR-013003

PATIENT
  Sex: Male
  Weight: 3.88 kg

DRUGS (6)
  1. CARIPRAZINE [Suspect]
     Active Substance: CARIPRAZINE
     Indication: Maternal exposure timing unspecified
     Route: 064
     Dates: start: 202207
  2. CARIPRAZINE [Suspect]
     Active Substance: CARIPRAZINE
     Indication: Maternal exposure timing unspecified
     Route: 063
  3. SERTRALINE [Concomitant]
     Active Substance: SERTRALINE HYDROCHLORIDE
     Indication: Product used for unknown indication
     Route: 064
     Dates: start: 202211
  4. SERTRALINE [Concomitant]
     Active Substance: SERTRALINE HYDROCHLORIDE
     Indication: Product used for unknown indication
     Route: 064
     Dates: start: 202312
  5. SERTRALINE [Concomitant]
     Active Substance: SERTRALINE HYDROCHLORIDE
     Indication: Product used for unknown indication
     Route: 064
     Dates: start: 20240820
  6. QUETIAPINE [Concomitant]
     Active Substance: QUETIAPINE
     Indication: Product used for unknown indication
     Route: 064

REACTIONS (5)
  - Cyanosis neonatal [Recovered/Resolved]
  - Hypotonia neonatal [Recovered/Resolved]
  - Exposure via breast milk [Unknown]
  - Amniotic cavity infection [Unknown]
  - Foetal exposure during pregnancy [Unknown]

NARRATIVE: CASE EVENT DATE: 20240403
